FAERS Safety Report 8849351 (Version 1)
Quarter: 2012Q4

REPORT INFORMATION
  Report Type: 
  Country: GR (occurrence: GR)
  Receive Date: 20121017
  Receipt Date: 20121017
  Transmission Date: 20130627
  Serious: Yes (Other)
  Sender: FDA-Public Use
  Company Number: GR-SHIRE-SPV1-2012-00907

PATIENT
  Age: 65 Year
  Sex: Female
  Weight: 84.5 kg

DRUGS (1)
  1. FOSRENOL [Suspect]
     Indication: HYPERPHOSPHATAEMIA
     Dosage: 750 mg, 3x/day:tid
     Route: 048
     Dates: start: 20111205, end: 20120425

REACTIONS (1)
  - Transaminases increased [Recovered/Resolved]
